FAERS Safety Report 21966736 (Version 1)
Quarter: 2023Q1

REPORT INFORMATION
  Report Type: Spontaneous
  Country: US (occurrence: US)
  Receive Date: 20230208
  Receipt Date: 20230208
  Transmission Date: 20230418
  Serious: No
  Sender: FDA-Public Use
  Company Number: US-SANOFI-01476826

PATIENT
  Age: 44 Year
  Sex: Female

DRUGS (3)
  1. DUPIXENT [Suspect]
     Active Substance: DUPILUMAB
     Indication: Dermatitis
     Dosage: 4 ML, QOW
     Dates: start: 2017
  2. DUPIXENT [Suspect]
     Active Substance: DUPILUMAB
     Indication: Dermatitis allergic
  3. EUCERIN [GLYCINE MAX OIL;RICINUS COMMUNIS OIL] [Concomitant]

REACTIONS (7)
  - Injection site urticaria [Unknown]
  - Injection site pain [Unknown]
  - Weight increased [Unknown]
  - Dermatitis [Unknown]
  - Stress [Unknown]
  - Product use in unapproved indication [Unknown]
  - Incorrect dose administered [Unknown]
